FAERS Safety Report 11229141 (Version 1)
Quarter: 2015Q2

REPORT INFORMATION
  Report Type: Spontaneous
  Country: US (occurrence: US)
  Receive Date: 20150630
  Receipt Date: 20150630
  Transmission Date: 20150821
  Serious: No
  Sender: FDA-Public Use
  Company Number: US-PFIZER INC-2015215994

PATIENT
  Sex: Male

DRUGS (1)
  1. CELEBREX [Suspect]
     Active Substance: CELECOXIB
     Dosage: AS NEEDED BUT DID NOT EVERY DAY

REACTIONS (3)
  - Intentional product misuse [Unknown]
  - Cardiac disorder [Unknown]
  - Liver disorder [Unknown]
